FAERS Safety Report 4457668-3 (Version None)
Quarter: 2004Q3

REPORT INFORMATION
  Report Type: 
  Country: None (occurrence: None)
  Receive Date: 20040922
  Receipt Date: 20040909
  Transmission Date: 20050211
  Serious: Yes (Hospitalization)
  Sender: FDA-Public Use
  Company Number: 208923

PATIENT
  Age: 61 Year
  Sex: Female
  Weight: 73.1 kg

DRUGS (3)
  1. MABTHERA (RITUXIMAB) CONC FOR SOLUTION FOR INFUSION [Suspect]
     Indication: CHRONIC LYMPHOCYTIC LEUKAEMIA
     Dosage: 900 MG, INTRAVENOUS
     Route: 042
     Dates: start: 20031217
  2. FLUDARABINE (FLUDARABINE PHOSPHATE) [Suspect]
     Indication: CHRONIC LYMPHOCYTIC LEUKAEMIA
     Dosage: 45 MG, INTRAVENOUS
     Route: 042
     Dates: start: 20031217
  3. CYCLOPHOSPHAMIDE [Suspect]
     Indication: CHRONIC LYMPHOCYTIC LEUKAEMIA
     Dosage: 480 MG, INTRAVENOUS
     Route: 042
     Dates: start: 20031217

REACTIONS (1)
  - CYTOMEGALOVIRUS INFECTION [None]
